FAERS Safety Report 7954446-5 (Version None)
Quarter: 2011Q4

REPORT INFORMATION
  Report Type: 
  Country: None (occurrence: None)
  Receive Date: 20111202
  Receipt Date: 20111128
  Transmission Date: 20120403
  Serious: Yes (Other)
  Sender: FDA-Public Use
  Company Number: NL-GLAXOSMITHKLINE-B0766749A

PATIENT
  Sex: Male

DRUGS (10)
  1. ZANTAC [Suspect]
     Indication: DYSPEPSIA
     Dosage: 10ML TWICE PER DAY
     Route: 048
     Dates: start: 20111020, end: 20111104
  2. EXELON [Concomitant]
     Dosage: 4.6MG PER DAY
     Route: 062
  3. SPIRIVA [Concomitant]
     Dosage: 18MCG PER DAY
     Route: 055
  4. TRAMADOL HCL [Concomitant]
     Dosage: 1U TWICE PER DAY
     Route: 048
  5. LIPITOR [Concomitant]
     Route: 048
  6. TAMSULOSIN HCL [Concomitant]
     Dosage: .4MG PER DAY
     Route: 048
  7. ACETYLSALICYLIC ACID SRT [Concomitant]
     Dosage: 80MG PER DAY
     Route: 048
  8. METOPROLOL TARTRATE [Concomitant]
     Dosage: 50MG TWICE PER DAY
     Route: 048
  9. PERINDOPRIL ERBUMINE [Concomitant]
     Dosage: 8MG PER DAY
     Route: 048
  10. FAMOTIDINE [Concomitant]
     Dosage: 20MG PER DAY
     Route: 048

REACTIONS (3)
  - DAYDREAMING [None]
  - DEMENTIA [None]
  - CONFUSIONAL STATE [None]
